FAERS Safety Report 8379907-9 (Version None)
Quarter: 2012Q1

REPORT INFORMATION
  Report Type: 
  Country: None (occurrence: None)
  Receive Date: 20120323
  Receipt Date: 20110414
  Transmission Date: 20120608
  Serious: Yes (Other)
  Sender: FDA-Public Use
  Company Number: 163-21880-11041968

PATIENT
  Age: 74 Year
  Sex: Male
  Weight: 88.9 kg

DRUGS (8)
  1. DEXAMETHASONE [Concomitant]
  2. EOMEPRAZOLE (ESOMEPRAZOLE) [Concomitant]
  3. LOSARTAN POTASSIUM [Concomitant]
  4. METOPROLOL TARTRATE [Concomitant]
  5. METHIMAZOLE [Concomitant]
  6. LASIX [Concomitant]
  7. PRAVASTATIN [Concomitant]
  8. REVLIMID [Suspect]
     Indication: MULTIPLE MYELOMA
     Dosage: 25;10 MG, DAILY, PO
     Route: 048
     Dates: start: 20110301

REACTIONS (1)
  - RENAL IMPAIRMENT [None]
